FAERS Safety Report 16848839 (Version 1)
Quarter: 2019Q3

REPORT INFORMATION
  Report Type: Spontaneous
  Country: US (occurrence: US)
  Receive Date: 20190925
  Receipt Date: 20190925
  Transmission Date: 20191005
  Serious: No
  Sender: FDA-Public Use
  Company Number: US-LEO PHARMA-325389

PATIENT
  Sex: Male

DRUGS (1)
  1. PICATO [Suspect]
     Active Substance: INGENOL MEBUTATE
     Indication: PRODUCT USED FOR UNKNOWN INDICATION
     Route: 061
     Dates: start: 201907

REACTIONS (5)
  - Product packaging quantity issue [Unknown]
  - Application site erythema [Recovered/Resolved]
  - Application site erosion [Not Recovered/Not Resolved]
  - Application site exfoliation [Recovered/Resolved]
  - Drug ineffective [Unknown]
